FAERS Safety Report 9402719 (Version 1)
Quarter: 2013Q3

REPORT INFORMATION
  Report Type: Spontaneous
  Country: US (occurrence: US)
  Receive Date: 20130716
  Receipt Date: 20130716
  Transmission Date: 20140515
  Serious: Yes (Hospitalization)
  Sender: FDA-Public Use
  Company Number: US-BAXTER-2013BAX027339

PATIENT
  Age: 54 Year
  Sex: Female
  Weight: 109 kg

DRUGS (3)
  1. DIANEAL LOW CALCIUM [Suspect]
     Indication: PERITONEAL DIALYSIS
     Route: 033
  2. EXTRANEAL [Suspect]
     Indication: PERITONEAL DIALYSIS
     Route: 033
     Dates: end: 20130702
  3. EXTRANEAL [Suspect]
     Route: 033
     Dates: start: 20130708

REACTIONS (1)
  - Pleural effusion [Recovered/Resolved]
